FAERS Safety Report 9436650 (Version 1)
Quarter: 2013Q3

REPORT INFORMATION
  Report Type: Spontaneous
  Country: US (occurrence: US)
  Receive Date: 20130802
  Receipt Date: 20130802
  Transmission Date: 20140515
  Serious: No
  Sender: FDA-Public Use
  Company Number: US-009507513-1307USA016266

PATIENT
  Age: 40 Year
  Sex: Female

DRUGS (5)
  1. SAPHRIS [Suspect]
     Indication: BIPOLAR I DISORDER
     Dosage: 5 MG, BID
     Route: 060
  2. PRINIVIL [Concomitant]
  3. NEXIUM [Concomitant]
  4. METFORMIN [Concomitant]
  5. GLYBURIDE [Concomitant]

REACTIONS (2)
  - Hypoaesthesia [Unknown]
  - Paraesthesia [Unknown]
